FAERS Safety Report 23473111 (Version 3)
Quarter: 2025Q3

REPORT INFORMATION
  Report Type: Report from Study
  Country: EU (occurrence: EU)
  Receive Date: 20240203
  Receipt Date: 20250919
  Transmission Date: 20251021
  Serious: Yes (Life-Threatening, Hospitalization)
  Sender: ABBVIE
  Company Number: EU-ABBVIE-5572984

PATIENT
  Age: 62 Year
  Sex: Female

DRUGS (16)
  1. SKYRIZI [Suspect]
     Active Substance: RISANKIZUMAB-RZAA
     Indication: Psoriasis
     Dosage: STRENGTH 150 MG. 300MG ONCE; DOSE ADJUSTMENT DUE TO LACK OF EFFICACY AND WORSENING OF PSORIATIC A...
     Route: 058
     Dates: start: 20210522, end: 20210819
  2. SKYRIZI [Suspect]
     Active Substance: RISANKIZUMAB-RZAA
     Route: 058
     Dates: start: 20210819, end: 20210819
  3. SKYRIZI [Suspect]
     Active Substance: RISANKIZUMAB-RZAA
     Dosage: STRENGTH 150 MG
     Route: 058
     Dates: start: 20210422, end: 20210522
  4. SKYRIZI [Suspect]
     Active Substance: RISANKIZUMAB-RZAA
     Dosage: STRENGTH 150 MG
     Route: 058
     Dates: start: 20240130
  5. SKYRIZI [Suspect]
     Active Substance: RISANKIZUMAB-RZAA
     Dosage: DOSE ADJUSTMENT DUE TO CLEARANCE NOS; 150MG/3 MONTHS
     Route: 058
     Dates: start: 20230105, end: 20231226
  6. SKYRIZI [Suspect]
     Active Substance: RISANKIZUMAB-RZAA
     Dosage: DOSE ADJUSTMENT DUE TO LACK OF EFFICACY AND WORSENING OF PSORIATIC ARTHRITIS.; 150MG/2 MONTHS
     Route: 058
     Dates: start: 20210820, end: 20230105
  7. BUPRENORPHINE [Concomitant]
     Active Substance: BUPRENORPHINE
     Indication: Pain
  8. COAL TAR [Concomitant]
     Active Substance: COAL TAR
     Indication: Psoriasis
  9. INSULIN NOS [Concomitant]
     Active Substance: INSULIN NOS
     Indication: Type 2 diabetes mellitus
  10. METFORMIN [Concomitant]
     Active Substance: METFORMIN HYDROCHLORIDE
     Indication: Type 2 diabetes mellitus
     Route: 048
     Dates: end: 20240427
  11. CLOBETASOL [Concomitant]
     Active Substance: CLOBETASOL
     Indication: Psoriasis
  12. BETAMETHASONE\CALCIPOTRIENE [Concomitant]
     Active Substance: BETAMETHASONE\CALCIPOTRIENE
     Indication: Psoriasis
     Dates: start: 20210422
  13. CALCITRIOL [Concomitant]
     Active Substance: CALCITRIOL
     Indication: Psoriasis
     Dates: start: 20210409
  14. BETAMETHASONE [Concomitant]
     Active Substance: BETAMETHASONE
     Indication: Psoriasis
     Dates: start: 20200910
  15. LISINOPRIL [Concomitant]
     Active Substance: LISINOPRIL
     Indication: Hypertension
     Route: 048
     Dates: start: 20190408, end: 20240427
  16. ETORICOXIB [Concomitant]
     Active Substance: ETORICOXIB
     Indication: Psoriatic arthropathy
     Route: 048

REACTIONS (1)
  - Bacterial sepsis [Recovered/Resolved]

NARRATIVE: CASE EVENT DATE: 20231226
